FAERS Safety Report 17839999 (Version 4)
Quarter: 2020Q2

REPORT INFORMATION
  Report Type: Report from Study
  Country: GB (occurrence: GB)
  Receive Date: 20200529
  Receipt Date: 20200629
  Transmission Date: 20200714
  Serious: No
  Sender: FDA-Public Use
  Company Number: GB-JNJFOC-20200508120

PATIENT
  Sex: Female

DRUGS (2)
  1. STELARA [Suspect]
     Active Substance: USTEKINUMAB
     Indication: PSORIASIS
     Dosage: STRENGTH 45 MG/0.5 ML
     Route: 058
  2. STELARA [Suspect]
     Active Substance: USTEKINUMAB

REACTIONS (5)
  - Inappropriate schedule of product administration [Unknown]
  - Injection site bruising [Recovering/Resolving]
  - Device issue [Unknown]
  - Needle issue [Unknown]
  - Off label use [Unknown]
